FAERS Safety Report 6962016-0 (Version None)
Quarter: 2010Q3

REPORT INFORMATION
  Report Type: 
  Country: None (occurrence: None)
  Receive Date: 20100902
  Receipt Date: 20100827
  Transmission Date: 20110219
  Serious: Yes (Other)
  Sender: FDA-Public Use
  Company Number: US-ASTRAZENECA-2007UW25217

PATIENT
  Age: 40 Year
  Sex: Female
  Weight: 98.9 kg

DRUGS (11)
  1. SEROQUEL [Suspect]
     Indication: ANXIETY
     Dosage: 200-600 MG
     Route: 048
     Dates: start: 20040601, end: 20061101
  2. SEROQUEL [Suspect]
     Indication: DEPRESSION
     Dosage: 200-600 MG
     Route: 048
     Dates: start: 20040601, end: 20061101
  3. SEROQUEL [Suspect]
     Indication: BIPOLAR DISORDER
     Dosage: 200-600 MG
     Route: 048
     Dates: start: 20040601, end: 20061101
  4. SEROQUEL [Suspect]
     Indication: SLEEP DISORDER
     Dosage: 200-600 MG
     Route: 048
     Dates: start: 20040601, end: 20061101
  5. SEROQUEL [Suspect]
     Dosage: 200-600 MG
     Route: 048
     Dates: start: 20060324
  6. SEROQUEL [Suspect]
     Dosage: 200-600 MG
     Route: 048
     Dates: start: 20060324
  7. SEROQUEL [Suspect]
     Dosage: 200-600 MG
     Route: 048
     Dates: start: 20060324
  8. SEROQUEL [Suspect]
     Dosage: 200-600 MG
     Route: 048
     Dates: start: 20060324
  9. DEPAKOTE ER [Concomitant]
     Indication: SLEEP DISORDER
     Dosage: 500-2000 MG
     Route: 048
     Dates: start: 20050324
  10. LEXAPRO [Concomitant]
     Route: 048
     Dates: start: 20050620
  11. ZOLOFT [Concomitant]
     Dosage: 50-100 MG
     Route: 048
     Dates: start: 20041005, end: 20050620

REACTIONS (4)
  - DIABETES MELLITUS [None]
  - DIABETIC NEUROPATHY [None]
  - MULTIPLE INJURIES [None]
  - TYPE 2 DIABETES MELLITUS [None]
